FAERS Safety Report 21549443 (Version 2)
Quarter: 2022Q4

REPORT INFORMATION
  Report Type: Report from Study
  Country: US (occurrence: US)
  Receive Date: 20221103
  Receipt Date: 20221226
  Transmission Date: 20230112
  Serious: No
  Sender: FDA-Public Use
  Company Number: US-ABBVIE-4151204

PATIENT
  Sex: Female

DRUGS (3)
  1. HUMIRA [Suspect]
     Active Substance: ADALIMUMAB
     Indication: Ankylosing spondylitis
     Dosage: STRENGTH- 40 MG
     Route: 058
     Dates: start: 20220909
  2. HUMIRA [Suspect]
     Active Substance: ADALIMUMAB
     Dosage: STRENGTH- 40 MG
     Route: 058
     Dates: start: 202111, end: 202209
  3. HUMIRA [Suspect]
     Active Substance: ADALIMUMAB
     Dosage: FORM STRENGTH 40 MG
     Route: 058

REACTIONS (10)
  - Upper respiratory tract infection [Unknown]
  - Ankylosing spondylitis [Unknown]
  - Illness [Recovered/Resolved]
  - Ankylosing spondylitis [Unknown]
  - Iritis [Recovered/Resolved]
  - Upper respiratory tract infection [Unknown]
  - Gastrointestinal disorder [Unknown]
  - Stress [Unknown]
  - Off label use [Unknown]
  - Therapeutic product effect decreased [Unknown]

NARRATIVE: CASE EVENT DATE: 20220101
